FAERS Safety Report 17113765 (Version 1)
Quarter: 2019Q4

REPORT INFORMATION
  Report Type: Spontaneous
  Country: ES (occurrence: ES)
  Receive Date: 20191205
  Receipt Date: 20191205
  Transmission Date: 20200122
  Serious: Yes (Hospitalization)
  Sender: FDA-Public Use
  Company Number: ES-ACCORD-163297

PATIENT
  Age: 60 Year
  Sex: Female

DRUGS (6)
  1. CONDROSAN [Concomitant]
  2. ATORVASTATIN/ATORVASTATIN CALCIUM [Suspect]
     Active Substance: ATORVASTATIN CALCIUM
     Indication: HYPERLIPIDAEMIA
     Dosage: STRENGTH: 30 MG
     Route: 048
     Dates: start: 20190717, end: 20191029
  3. TOPIRAMATE. [Concomitant]
     Active Substance: TOPIRAMATE
  4. ENALAPRIL [Concomitant]
     Active Substance: ENALAPRIL
  5. OMEPRAZOLE. [Concomitant]
     Active Substance: OMEPRAZOLE
  6. HYDROCHLOROTHIAZIDE. [Concomitant]
     Active Substance: HYDROCHLOROTHIAZIDE

REACTIONS (1)
  - Intestinal obstruction [Recovered/Resolved]

NARRATIVE: CASE EVENT DATE: 20191029
